FAERS Safety Report 7534999-1 (Version None)
Quarter: 2011Q2

REPORT INFORMATION
  Report Type: 
  Country: None (occurrence: None)
  Receive Date: 20110609
  Receipt Date: 20110531
  Transmission Date: 20111010
  Serious: No
  Sender: FDA-Public Use
  Company Number: US-BIOGENIDEC-2010BI030854

PATIENT
  Sex: Female

DRUGS (1)
  1. TYSABRI [Suspect]
     Indication: MULTIPLE SCLEROSIS
     Route: 042
     Dates: start: 20090928

REACTIONS (13)
  - PARAESTHESIA [None]
  - HEADACHE [None]
  - PAIN [None]
  - TENSION [None]
  - MUSCLE SPASMS [None]
  - IRRITABILITY [None]
  - MALAISE [None]
  - FEELING ABNORMAL [None]
  - ASTHENIA [None]
  - CONFUSIONAL STATE [None]
  - COORDINATION ABNORMAL [None]
  - DRUG EFFECT DECREASED [None]
  - NERVOUSNESS [None]
